FAERS Safety Report 4952894-9 (Version None)
Quarter: 2006Q1

REPORT INFORMATION
  Report Type: 
  Country: None (occurrence: None)
  Receive Date: 20060320
  Receipt Date: 20060307
  Transmission Date: 20060701
  Serious: Yes (Other)
  Sender: FDA-Public Use
  Company Number: 2004033027

PATIENT
  Age: 57 Year
  Sex: Male
  Weight: 109.7705 kg

DRUGS (8)
  1. NEURONTIN [Suspect]
     Indication: DIABETIC NEUROPATHY
     Dosage: 4500 MG
     Dates: end: 20050101
  2. LYRICA [Suspect]
     Indication: DIABETIC NEUROPATHY
     Dosage: 1 D
  3. TEGRETOL [Suspect]
     Indication: NEUROPATHY
     Dosage: 300 MG (100 MG 3 IN 1 D) ORAL
     Route: 048
     Dates: start: 20040101, end: 20040101
  4. GABAPENTIN [Suspect]
     Indication: NEUROPATHY
     Dosage: ORAL
     Route: 048
     Dates: start: 20050101
  5. PRILOSEC [Concomitant]
  6. COLACE (DOCUSATE SODIUM) [Concomitant]
  7. VALIUM [Concomitant]
  8. NEXIUM [Concomitant]

REACTIONS (37)
  - ABDOMINAL DISCOMFORT [None]
  - ABDOMINAL PAIN UPPER [None]
  - AMNESIA [None]
  - ASTHMA [None]
  - BLISTER [None]
  - BRONCHITIS [None]
  - CONDITION AGGRAVATED [None]
  - CONSTIPATION [None]
  - CONVULSION [None]
  - COUGH [None]
  - DIARRHOEA [None]
  - DIZZINESS [None]
  - DRUG EFFECT DECREASED [None]
  - DRUG HYPERSENSITIVITY [None]
  - DRUG INEFFECTIVE [None]
  - DRUG WITHDRAWAL SYNDROME [None]
  - DRY EYE [None]
  - DYSPNOEA [None]
  - DYSURIA [None]
  - HAEMORRHOIDS [None]
  - HYPERSENSITIVITY [None]
  - INAPPROPRIATE SCHEDULE OF DRUG ADMINISTRATION [None]
  - IRRITABLE BOWEL SYNDROME [None]
  - MUSCLE SPASMS [None]
  - PAIN [None]
  - PARAESTHESIA [None]
  - PRODUCTIVE COUGH [None]
  - PYREXIA [None]
  - RASH [None]
  - RESPIRATORY DISORDER [None]
  - SOMNOLENCE [None]
  - STRESS [None]
  - URINARY HESITATION [None]
  - URINARY RETENTION [None]
  - WEIGHT INCREASED [None]
  - WHEEZING [None]
  - WRONG TECHNIQUE IN DRUG USAGE PROCESS [None]
